FAERS Safety Report 9209541 (Version 1)
Quarter: 2013Q1

REPORT INFORMATION
  Report Type: Spontaneous
  Country: US (occurrence: None)
  Receive Date: 20120820
  Receipt Date: 20120820
  Transmission Date: 20140127
  Serious: No
  Sender: FDA-Public Use
  Company Number: 1000030404

PATIENT
  Age: 44 Year
  Sex: Female

DRUGS (6)
  1. VIIBRYD [Suspect]
     Indication: DEPRESSION
     Dosage: 10MG 1 IN 1 D
     Route: 048
     Dates: start: 20120504
  2. CARAFATE (SUCRALFATE) (SUCRALFATE) [Concomitant]
  3. AMBIEN (ZOLPIDEM TARTRATE) (ZOLPIDEM TARTRATE) [Concomitant]
  4. SYBICORT (BUDESONIDE W/FORMOTEROL FURMARATE) (BUDESONIDE W/FORMOTEROL FUMARATE) [Concomitant]
  5. PROAIR HFA (SALBUTAMOL SULFATE) (SALBUTAMOL SULFATE) [Concomitant]
  6. VITAMIN B 12 (VITAMIN B 12) (VITAMIN B12) [Concomitant]

REACTIONS (1)
  - Clumsiness [None]
